FAERS Safety Report 18943146 (Version 1)
Quarter: 2021Q1

REPORT INFORMATION
  Report Type: Report from Study
  Country: US (occurrence: US)
  Receive Date: 20210226
  Receipt Date: 20210226
  Transmission Date: 20210420
  Serious: Yes (Hospitalization, Other)
  Sender: FDA-Public Use
  Company Number: US-ACADIA PHARMACEUTICALS INC.-ACA-2021-PIM-000633

PATIENT
  Sex: Female

DRUGS (4)
  1. NORTHERA [Concomitant]
     Active Substance: DROXIDOPA
  2. NUPLAZID [Suspect]
     Active Substance: PIMAVANSERIN TARTRATE
     Indication: PARKINSON^S DISEASE
     Dosage: 34 MILLIGRAM, QD
     Route: 048
     Dates: start: 20201223
  3. RIVASTIGMINE. [Concomitant]
     Active Substance: RIVASTIGMINE
  4. FLUDROCORTISON [Concomitant]
     Active Substance: FLUDROCORTISONE

REACTIONS (4)
  - Fall [Unknown]
  - Balance disorder [Not Recovered/Not Resolved]
  - Hip fracture [Not Recovered/Not Resolved]
  - Hallucination [Not Recovered/Not Resolved]
